FAERS Safety Report 15854162 (Version 2)
Quarter: 2019Q1

REPORT INFORMATION
  Report Type: Spontaneous
  Country: DE (occurrence: DE)
  Receive Date: 20190122
  Receipt Date: 20190128
  Transmission Date: 20190417
  Serious: Yes (Other)
  Sender: FDA-Public Use
  Company Number: DE-IGSA-SR10007667

PATIENT

DRUGS (9)
  1. HIZENTRA [Suspect]
     Active Substance: HUMAN IMMUNOGLOBULIN G
     Dosage: 50 ML, SINGLE
     Route: 058
     Dates: start: 20181223, end: 20181223
  2. HIZENTRA [Suspect]
     Active Substance: HUMAN IMMUNOGLOBULIN G
     Dosage: 50 ML, SINGLE
     Route: 058
     Dates: start: 20181212, end: 20181212
  3. HIZENTRA [Suspect]
     Active Substance: HUMAN IMMUNOGLOBULIN G
     Dosage: 50 ML, SINGLE
     Route: 058
     Dates: start: 20181210, end: 20181210
  4. GAMUNEX [Suspect]
     Active Substance: HUMAN IMMUNOGLOBULIN G
     Indication: CHRONIC INFLAMMATORY DEMYELINATING POLYRADICULONEUROPATHY
     Dosage: UNK
     Route: 042
     Dates: end: 20181128
  5. HIZENTRA [Suspect]
     Active Substance: HUMAN IMMUNOGLOBULIN G
     Dosage: 40 ML, SINGLE
     Route: 058
     Dates: start: 20181206, end: 20181206
  6. GAMUNEX [Suspect]
     Active Substance: HUMAN IMMUNOGLOBULIN G
     Dosage: 1000 ML, 3 DAYS 400/400/200
     Route: 042
  7. GAMUNEX [Suspect]
     Active Substance: HUMAN IMMUNOGLOBULIN G
     Dosage: UNK UNK, Q3W (1)
     Route: 042
     Dates: start: 2015, end: 20181128
  8. HIZENTRA [Suspect]
     Active Substance: HUMAN IMMUNOGLOBULIN G
     Dosage: 40 ML, SINGLE
     Route: 058
     Dates: start: 20181203, end: 20181203
  9. HIZENTRA [Suspect]
     Active Substance: HUMAN IMMUNOGLOBULIN G
     Indication: CHRONIC INFLAMMATORY DEMYELINATING POLYRADICULONEUROPATHY
     Dosage: 20 ML, SINGLE
     Route: 058
     Dates: start: 20181126, end: 20181126

REACTIONS (17)
  - Chronic inflammatory demyelinating polyradiculoneuropathy [Unknown]
  - Burning sensation [Recovered/Resolved]
  - Hypoaesthesia [Recovering/Resolving]
  - Hypoaesthesia [Not Recovered/Not Resolved]
  - Paraesthesia [Not Recovered/Not Resolved]
  - Paraesthesia [Recovered/Resolved]
  - Headache [Recovered/Resolved]
  - Hypoaesthesia [Not Recovered/Not Resolved]
  - Paraesthesia [Recovering/Resolving]
  - Paraesthesia [Recovered/Resolved]
  - Headache [Unknown]
  - Chronic inflammatory demyelinating polyradiculoneuropathy [Recovered/Resolved]
  - Adverse drug reaction [Unknown]
  - Paraesthesia [Recovering/Resolving]
  - Hypoaesthesia [Recovering/Resolving]
  - Hypoaesthesia [Recovered/Resolved]
  - Palpitations [Recovered/Resolved]

NARRATIVE: CASE EVENT DATE: 20181126
